FAERS Safety Report 19462711 (Version 4)
Quarter: 2023Q2

REPORT INFORMATION
  Report Type: Report from Study
  Country: US (occurrence: US)
  Receive Date: 20210625
  Receipt Date: 20230504
  Transmission Date: 20230721
  Serious: Yes (Hospitalization)
  Sender: FDA-Public Use
  Company Number: US-PFIZER INC-2021727680

PATIENT
  Age: 65 Year
  Sex: Female
  Weight: 146.6 kg

DRUGS (2)
  1. AVELUMAB [Suspect]
     Active Substance: AVELUMAB
     Indication: Endometrial cancer metastatic
     Dosage: 800 MG, Q 2 WEEKS
     Route: 042
     Dates: start: 20210603, end: 20210603
  2. AXITINIB [Suspect]
     Active Substance: AXITINIB
     Indication: Endometrial cancer metastatic
     Dosage: 5 MG, TWICE DAILY
     Route: 048
     Dates: start: 20210603, end: 20210613

REACTIONS (1)
  - Abdominal pain [Recovered/Resolved]

NARRATIVE: CASE EVENT DATE: 20210613
